FAERS Safety Report 9559306 (Version 2)
Quarter: 2013Q4

REPORT INFORMATION
  Report Type: Spontaneous
  Country: US (occurrence: None)
  Receive Date: 20130925
  Receipt Date: 20131016
  Transmission Date: 20140711
  Serious: Yes (Death)
  Sender: FDA-Public Use
  Company Number: UTC-038056

PATIENT
  Age: 70 Year
  Sex: Female
  Weight: 58.63 kg

DRUGS (2)
  1. REMODULIN (10 MILLIGRAM/MILLILITERS, INJECTION FOR INFUSION) (TREPROSTINIL SODIUM) [Suspect]
     Indication: PULMONARY HYPERTENSION
     Dosage: 113.76 UG/KG (0.079 UG/KG, 1 IN 1 MIN), SUBCUTANEOUS
     Dates: start: 20120203
  2. LETAIRIS (AMBRISENTAN) (UNKNOWN) [Concomitant]

REACTIONS (2)
  - Respiratory failure [None]
  - Right ventricular failure [None]
